FAERS Safety Report 4875043-4 (Version None)
Quarter: 2006Q1

REPORT INFORMATION
  Report Type: 
  Country: None (occurrence: None)
  Receive Date: 20060104
  Receipt Date: 20051221
  Transmission Date: 20060701
  Serious: Yes (Hospitalization)
  Sender: FDA-Public Use
  Company Number: 8014024

PATIENT
  Sex: Female

DRUGS (2)
  1. KEPPRA [Suspect]
     Indication: EPILEPSY
     Dosage: 1250 MG /D PO
     Route: 048
     Dates: start: 20050420
  2. DEPAKENE [Suspect]
     Indication: EPILEPSY
     Dosage: 500 MG /D PO
     Route: 047
     Dates: start: 20030801

REACTIONS (1)
  - HAEMORRHAGIC DISORDER [None]
